FAERS Safety Report 5077859-0 (Version None)
Quarter: 2006Q3

REPORT INFORMATION
  Report Type: 
  Country: None (occurrence: None)
  Receive Date: 20060720
  Receipt Date: 20051215
  Transmission Date: 20061208
  Serious: Yes (Other)
  Sender: FDA-Public Use
  Company Number: 2006MP000035

PATIENT
  Age: 71 Year
  Sex: Male

DRUGS (1)
  1. AGGRASTAT [Suspect]
     Indication: CORONARY ANGIOPLASTY
     Dosage: SEE IMAGE
     Route: 042

REACTIONS (3)
  - ACUTE MYOCARDIAL INFARCTION [None]
  - DRUG SPECIFIC ANTIBODY PRESENT [None]
  - THROMBOCYTOPENIA [None]
